FAERS Safety Report 12497167 (Version 3)
Quarter: 2017Q2

REPORT INFORMATION
  Report Type: Spontaneous
  Country: US (occurrence: US)
  Receive Date: 20160624
  Receipt Date: 20170413
  Transmission Date: 20170830
  Serious: Yes (Hospitalization)
  Sender: FDA-Public Use
  Company Number: US-GLAXOSMITHKLINE-US2016GSK090018

PATIENT
  Age: 74 Year
  Sex: Female

DRUGS (11)
  1. ADVAIR DISKUS [Suspect]
     Active Substance: FLUTICASONE PROPIONATE\SALMETEROL XINAFOATE
     Indication: ASTHMA
     Dosage: UNK
     Dates: start: 20160414
  2. OXYBUTYNIN [Concomitant]
     Active Substance: OXYBUTYNIN
  3. METOPROLOL. [Concomitant]
     Active Substance: METOPROLOL
  4. CRANBERRY. [Concomitant]
     Active Substance: CRANBERRY
  5. ADVAIR DISKUS [Suspect]
     Active Substance: FLUTICASONE PROPIONATE\SALMETEROL XINAFOATE
     Dosage: UNK
  6. ADVAIR HFA [Suspect]
     Active Substance: FLUTICASONE PROPIONATE\SALMETEROL XINAFOATE
     Dosage: 2 PUFF(S), BID
     Dates: start: 2006
  7. ADVAIR DISKUS [Suspect]
     Active Substance: FLUTICASONE PROPIONATE\SALMETEROL XINAFOATE
     Dosage: 1 PUFF(S), BID
     Dates: start: 20160326, end: 20160331
  8. CALCIUM [Concomitant]
     Active Substance: CALCIUM
  9. PRADAXA [Concomitant]
     Active Substance: DABIGATRAN ETEXILATE MESYLATE
  10. ADVAIR HFA [Suspect]
     Active Substance: FLUTICASONE PROPIONATE\SALMETEROL XINAFOATE
     Indication: ASTHMA
     Dosage: UNK
     Dates: start: 1990
  11. LOVASTATIN. [Concomitant]
     Active Substance: LOVASTATIN

REACTIONS (9)
  - Joint injury [Recovering/Resolving]
  - Surgery [Unknown]
  - Drain placement [Unknown]
  - Pain [Recovering/Resolving]
  - Candida infection [Unknown]
  - Scab [Recovering/Resolving]
  - Infection [Recovering/Resolving]
  - Cough [Unknown]
  - Road traffic accident [Recovering/Resolving]

NARRATIVE: CASE EVENT DATE: 20160326
